FAERS Safety Report 4515183-2 (Version None)
Quarter: 2004Q4

REPORT INFORMATION
  Report Type: 
  Country: None (occurrence: None)
  Receive Date: 20041201
  Receipt Date: 20041122
  Transmission Date: 20050328
  Serious: Yes (Other)
  Sender: FDA-Public Use
  Company Number: US-GLAXOSMITHKLINE-A0534837A

PATIENT
  Age: 30 Year
  Sex: Male

DRUGS (2)
  1. ADVAIR DISKUS 100/50 [Suspect]
     Indication: DRUG USE FOR UNKNOWN INDICATION
     Route: 055
  2. NO CONCURRENT MEDICATION [Concomitant]

REACTIONS (6)
  - DIZZINESS [None]
  - FALL [None]
  - HEADACHE [None]
  - LACERATION [None]
  - LOSS OF CONSCIOUSNESS [None]
  - SKIN LACERATION [None]
